FAERS Safety Report 6141156-2 (Version None)
Quarter: 2009Q2

REPORT INFORMATION
  Report Type: 
  Country: None (occurrence: None)
  Receive Date: 20090402
  Receipt Date: 20090323
  Transmission Date: 20091009
  Serious: Yes (Hospitalization)
  Sender: FDA-Public Use
  Company Number: FR-NOVOPROD-285612

PATIENT
  Age: 78 Year
  Sex: Male

DRUGS (5)
  1. NOVOLOG MIX 70/30 [Suspect]
     Indication: DIABETES MELLITUS
     Dosage: UNKNOWN
  2. LUMIRELAX                          /00047901/ [Concomitant]
  3. COAPROVEL [Concomitant]
  4. NICARDIPINE HCL [Concomitant]
  5. PAROXETINE HCL [Concomitant]

REACTIONS (3)
  - ERYTHEMA [None]
  - HYPERGLYCAEMIA [None]
  - SWELLING FACE [None]
